FAERS Safety Report 5479509-8 (Version None)
Quarter: 2007Q4

REPORT INFORMATION
  Report Type: 
  Country: None (occurrence: None)
  Receive Date: 20071008
  Receipt Date: 20070926
  Transmission Date: 20080405
  Serious: Yes (Hospitalization)
  Sender: FDA-Public Use
  Company Number: AU-ROCHE-513988

PATIENT
  Age: 60 Year
  Sex: Male
  Weight: 75.2 kg

DRUGS (13)
  1. CAPECITABINE [Suspect]
     Indication: COLON CANCER
     Route: 048
     Dates: start: 20070809, end: 20070822
  2. BEVACIZUMAB [Suspect]
     Indication: COLON CANCER
     Route: 042
     Dates: start: 20070809, end: 20070809
  3. BEVACIZUMAB [Suspect]
     Route: 042
     Dates: start: 20070919
  4. MIXTARD HUMAN 70/30 [Concomitant]
     Route: 058
  5. ACETAMINOPHEN W/ CODEINE [Concomitant]
     Indication: PAIN
     Route: 048
     Dates: start: 20070825, end: 20070825
  6. ATENOLOL [Concomitant]
     Indication: HYPERTENSION
     Route: 048
  7. GLYBURIDE [Concomitant]
     Indication: DRUG THERAPY
     Route: 048
  8. SPIROLACTONE [Concomitant]
     Indication: POLYURIA
     Route: 048
  9. ESOMEPRAZOLE MAGNESIUM [Concomitant]
     Indication: ILL-DEFINED DISORDER
     Route: 048
  10. MAGNESIUM ASPARTATE [Concomitant]
     Indication: MAGNESIUM DEFICIENCY
     Route: 048
     Dates: start: 20070830, end: 20070830
  11. CALCIUM CARBONATE [Concomitant]
     Indication: CALCIUM DEFICIENCY
     Route: 048
     Dates: start: 20070902, end: 20070907
  12. SODIUM ACID PHOSPHATE [Concomitant]
     Indication: ELECTROLYTE IMBALANCE
     Route: 048
     Dates: start: 20070902, end: 20070905
  13. CYANOCOBALAMIN [Concomitant]
     Route: 030
     Dates: start: 20070904, end: 20070904

REACTIONS (1)
  - HYPERGLYCAEMIA [None]
